FAERS Safety Report 6737827-7 (Version None)
Quarter: 2010Q2

REPORT INFORMATION
  Report Type: 
  Country: None (occurrence: None)
  Receive Date: 20100524
  Receipt Date: 20100520
  Transmission Date: 20101027
  Serious: Yes (Other)
  Sender: FDA-Public Use
  Company Number: CN-JNJFOC-20100403352

PATIENT
  Age: 30 Year

DRUGS (2)
  1. RISPERDAL [Suspect]
     Indication: SCHIZOPHRENIA
     Route: 048
  2. RISPERDAL [Suspect]
     Route: 048

REACTIONS (9)
  - AKATHISIA [None]
  - DYSPNOEA [None]
  - EATING DISORDER [None]
  - EJACULATION DISORDER [None]
  - EXTRAPYRAMIDAL DISORDER [None]
  - MUSCLE ATROPHY [None]
  - PRIAPISM [None]
  - SLUGGISHNESS [None]
  - TREMOR [None]
